FAERS Safety Report 20608898 (Version 1)
Quarter: 2022Q1

REPORT INFORMATION
  Report Type: Report from Study
  Country: US (occurrence: US)
  Receive Date: 20220317
  Receipt Date: 20220317
  Transmission Date: 20220423
  Serious: Yes (Hospitalization)
  Sender: FDA-Public Use
  Company Number: US-ABBVIE-21K-163-4174076-00

PATIENT
  Sex: Male

DRUGS (4)
  1. HUMIRA [Suspect]
     Active Substance: ADALIMUMAB
     Indication: Crohn^s disease
     Dosage: DAY 1
     Route: 058
     Dates: start: 20211115, end: 20211115
  2. HUMIRA [Suspect]
     Active Substance: ADALIMUMAB
     Dosage: DAY 15
     Route: 058
     Dates: start: 20211129, end: 20211129
  3. HUMIRA [Suspect]
     Active Substance: ADALIMUMAB
     Indication: Crohn^s disease
     Dosage: DAY 29
     Route: 058
     Dates: start: 20211213
  4. HUMIRA [Suspect]
     Active Substance: ADALIMUMAB
     Route: 058
     Dates: start: 202202

REACTIONS (18)
  - Blood glucose abnormal [Unknown]
  - Weight increased [Not Recovered/Not Resolved]
  - Hyperphagia [Recovering/Resolving]
  - Fatigue [Not Recovered/Not Resolved]
  - Large intestinal ulcer [Unknown]
  - Gastrointestinal sounds abnormal [Not Recovered/Not Resolved]
  - Hunger [Recovered/Resolved]
  - Asthenia [Not Recovered/Not Resolved]
  - Off label use [Unknown]
  - Constipation [Not Recovered/Not Resolved]
  - Decreased appetite [Not Recovered/Not Resolved]
  - Insomnia [Not Recovered/Not Resolved]
  - Abdominal distension [Unknown]
  - Abdominal distension [Not Recovered/Not Resolved]
  - Arthritis [Recovering/Resolving]
  - Abdominal pain [Unknown]
  - Vomiting [Not Recovered/Not Resolved]
  - Nausea [Not Recovered/Not Resolved]

NARRATIVE: CASE EVENT DATE: 20210101
